FAERS Safety Report 9439666 (Version 1)
Quarter: 2013Q3

REPORT INFORMATION
  Report Type: Spontaneous
  Country: US (occurrence: US)
  Receive Date: 20130805
  Receipt Date: 20130805
  Transmission Date: 20140515
  Serious: No
  Sender: FDA-Public Use
  Company Number: US-PFIZER INC-2013223106

PATIENT
  Sex: Female

DRUGS (1)
  1. CELEBREX [Suspect]
     Indication: ARTHRITIS
     Dosage: UNK

REACTIONS (5)
  - Spondylitis [Unknown]
  - Myalgia [Unknown]
  - Tendon disorder [Unknown]
  - Joint range of motion decreased [Unknown]
  - Neck pain [Unknown]
